FAERS Safety Report 22173740 (Version 1)
Quarter: 2023Q2

REPORT INFORMATION
  Report Type: Spontaneous
  Country: CA (occurrence: CA)
  Receive Date: 20230404
  Receipt Date: 20230404
  Transmission Date: 20230721
  Serious: Yes (Hospitalization, Other)
  Sender: FDA-Public Use
  Company Number: CA-JNJFOC-20211008096

PATIENT
  Sex: Male

DRUGS (3)
  1. INVEGA TRINZA [Suspect]
     Active Substance: PALIPERIDONE PALMITATE
     Indication: Schizophrenia
     Route: 030
  2. INVEGA TRINZA [Suspect]
     Active Substance: PALIPERIDONE PALMITATE
     Route: 030
  3. INVEGA TRINZA [Suspect]
     Active Substance: PALIPERIDONE PALMITATE

REACTIONS (7)
  - Schizophrenia [Recovering/Resolving]
  - Constipation [Recovered/Resolved]
  - Sexual dysfunction [Recovering/Resolving]
  - Insomnia [Recovering/Resolving]
  - Product dose omission issue [Unknown]
  - Gastrointestinal injury [Recovering/Resolving]
  - Intestinal ulcer [Unknown]
